FAERS Safety Report 7505723-3 (Version None)
Quarter: 2011Q2

REPORT INFORMATION
  Report Type: 
  Country: None (occurrence: None)
  Receive Date: 20110526
  Receipt Date: 20110512
  Transmission Date: 20111010
  Serious: Yes (Hospitalization)
  Sender: FDA-Public Use
  Company Number: DK-AMGEN-US274141

PATIENT
  Age: 48 Year
  Sex: Male
  Weight: 71.4 kg

DRUGS (7)
  1. ETANERCEPT [Suspect]
     Indication: ANKYLOSING SPONDYLITIS
     Dosage: UNK UNK, UNK
     Route: 058
     Dates: start: 20050811, end: 20080207
  2. REMICADE [Suspect]
     Indication: ANKYLOSING SPONDYLITIS
     Dosage: 450 MG, UNK
     Route: 042
     Dates: start: 20060224, end: 20080226
  3. TRAMADOL HCL [Concomitant]
     Dosage: 50 MG, BID
  4. HUMIRA [Suspect]
     Indication: ANKYLOSING SPONDYLITIS
     Dosage: UNK UNK, UNK
     Route: 065
     Dates: start: 20051128, end: 20060224
  5. REMICADE [Suspect]
     Dosage: 650 MG, UNK
     Dates: start: 20080204, end: 20080226
  6. METHOTREXATE [Concomitant]
     Dosage: UNK UNK, UNK
     Route: 048
     Dates: start: 20050715
  7. PREDNISOLONE [Concomitant]
     Dosage: UNK
     Dates: start: 20051118, end: 20060224

REACTIONS (2)
  - PULMONARY TUBERCULOSIS [None]
  - MYCOBACTERIAL INFECTION [None]
